FAERS Safety Report 9420790 (Version 1)
Quarter: 2013Q3

REPORT INFORMATION
  Report Type: Spontaneous
  Country: US (occurrence: US)
  Receive Date: 20130725
  Receipt Date: 20130725
  Transmission Date: 20140515
  Serious: No
  Sender: FDA-Public Use
  Company Number: US-ABBOTT-13P-163-1096563-00

PATIENT
  Age: 77 Year
  Sex: Male

DRUGS (3)
  1. SYNTHROID [Suspect]
     Indication: HYPOTHYROIDISM
     Dates: start: 201305
  2. AVODART [Concomitant]
     Indication: PROSTATIC DISORDER
  3. QUINAPRIL [Concomitant]
     Indication: HYPERTENSION

REACTIONS (2)
  - Therapeutic response unexpected [Not Recovered/Not Resolved]
  - Blood pressure inadequately controlled [Not Recovered/Not Resolved]
